FAERS Safety Report 7906630-4 (Version None)
Quarter: 2011Q4

REPORT INFORMATION
  Report Type: 
  Country: None (occurrence: None)
  Receive Date: 20111110
  Receipt Date: 20111104
  Transmission Date: 20120403
  Serious: Yes (Hospitalization)
  Sender: FDA-Public Use
  Company Number: US-B.I. PHARMACEUTICALS,INC./RIDGEFIELD-2011-BP-19310BP

PATIENT
  Age: 83 Year
  Sex: Male

DRUGS (4)
  1. PRADAXA [Suspect]
     Indication: ATRIAL FIBRILLATION
     Dosage: 300 MG
     Route: 048
     Dates: end: 20110715
  2. JANUVIA [Concomitant]
     Dosage: 100 MG
  3. METFORMIN HCL [Concomitant]
     Dosage: 1000 MG
  4. TOPROL-XL [Concomitant]
     Dosage: 50 MG

REACTIONS (3)
  - METABOLIC ACIDOSIS [None]
  - RENAL FAILURE ACUTE [None]
  - PERICARDIAL HAEMORRHAGE [None]
